FAERS Safety Report 6408744-7 (Version None)
Quarter: 2009Q4

REPORT INFORMATION
  Report Type: 
  Country: None (occurrence: None)
  Receive Date: 20091021
  Receipt Date: 20091013
  Transmission Date: 20100525
  Serious: Yes (Hospitalization)
  Sender: FDA-Public Use
  Company Number: A0788542A

PATIENT
  Age: 74 Year
  Sex: Male

DRUGS (7)
  1. AVANDIA [Suspect]
     Dosage: 4MG PER DAY
     Route: 048
     Dates: start: 19990101, end: 20070401
  2. ASPIRIN [Concomitant]
  3. FEOSOL [Concomitant]
  4. GLUCOPHAGE [Concomitant]
  5. INSULIN [Concomitant]
  6. DIOVAN [Concomitant]
  7. ALLERGY SHOT [Concomitant]

REACTIONS (3)
  - FEMUR FRACTURE [None]
  - HEART INJURY [None]
  - HIP FRACTURE [None]
